FAERS Safety Report 4697176-8 (Version None)
Quarter: 2005Q2

REPORT INFORMATION
  Report Type: 
  Country: None (occurrence: None)
  Receive Date: 20050622
  Receipt Date: 20050602
  Transmission Date: 20051028
  Serious: Yes (Other)
  Sender: FDA-Public Use
  Company Number: PHHO2005CA08934

PATIENT
  Age: 56 Year
  Sex: Male
  Weight: 80 kg

DRUGS (4)
  1. DIOVAN [Suspect]
     Dosage: 160 MG, QD
     Route: 048
     Dates: start: 20050311, end: 20050312
  2. ACCUPRIL [Concomitant]
  3. TIAZAC [Concomitant]
  4. LOSEC [Concomitant]

REACTIONS (3)
  - BLOOD PRESSURE INCREASED [None]
  - FEELING HOT [None]
  - THROAT TIGHTNESS [None]
